FAERS Safety Report 6115410-4 (Version None)
Quarter: 2009Q1

REPORT INFORMATION
  Report Type: 
  Country: None (occurrence: None)
  Receive Date: 20090313
  Receipt Date: 20090304
  Transmission Date: 20090719
  Serious: Yes (Hospitalization)
  Sender: FDA-Public Use
  Company Number: JP-BRISTOL-MYERS SQUIBB COMPANY-14521140

PATIENT
  Age: 42 Year
  Sex: Female
  Weight: 67 kg

DRUGS (8)
  1. ABILIFY [Suspect]
     Indication: SCHIZOPHRENIA
     Route: 048
     Dates: end: 20081203
  2. VEGETAMIN A [Suspect]
     Dosage: FORM-TABS
     Route: 048
     Dates: end: 20081203
  3. HIRNAMIN [Concomitant]
     Dosage: HIRNAMIN TAB
     Dates: end: 20081203
  4. LIMAS [Concomitant]
     Dosage: LIMAS TABLET
     Dates: end: 20081203
  5. VEGETAMIN-B [Concomitant]
     Dosage: VEGETAMIN-B TABLET
     Dates: end: 20081203
  6. RISPERDAL [Concomitant]
     Dosage: LIQUID
     Dates: end: 20081203
  7. ROHYPNOL [Concomitant]
     Dosage: ROHYPNOL TABLET
  8. SEROQUEL [Concomitant]
     Dosage: SEROQUEL TABLET

REACTIONS (1)
  - DRUG RASH WITH EOSINOPHILIA AND SYSTEMIC SYMPTOMS [None]
